FAERS Safety Report 5780525-7 (Version None)
Quarter: 2008Q2

REPORT INFORMATION
  Report Type: 
  Country: None (occurrence: None)
  Receive Date: 20080620
  Receipt Date: 20080616
  Transmission Date: 20081010
  Serious: Yes (Other)
  Sender: FDA-Public Use
  Company Number: US-ASTRAZENECA-2008UW12087

PATIENT
  Age: 78 Year
  Sex: Male
  Weight: 99.3 kg

DRUGS (7)
  1. CRESTOR [Suspect]
     Indication: BLOOD CHOLESTEROL INCREASED
     Route: 048
     Dates: start: 20070101, end: 20080425
  2. FLECAINIDE ACETATE [Concomitant]
  3. ATENOLOL [Concomitant]
  4. BENICAR [Concomitant]
     Dosage: 1/2 TABLET
  5. WARFARIN SODIUM [Concomitant]
  6. FISH OIL [Concomitant]
  7. ADVAIR DISKUS 100/50 [Concomitant]

REACTIONS (4)
  - ASTHENIA [None]
  - DIZZINESS [None]
  - FALL [None]
  - MYALGIA [None]
